FAERS Safety Report 19427065 (Version 1)
Quarter: 2021Q2

REPORT INFORMATION
  Report Type: Spontaneous
  Country: PR (occurrence: PR)
  Receive Date: 20210616
  Receipt Date: 20210616
  Transmission Date: 20210717
  Serious: Yes (Death)
  Sender: FDA-Public Use
  Company Number: PR-MALLINCKRODT PHARMACEUTICALS-T202102656

PATIENT
  Age: 66 Year
  Sex: Male

DRUGS (1)
  1. H.P. ACTHAR [Suspect]
     Active Substance: CORTICOTROPIN
     Indication: PEMPHIGOID
     Dosage: 80 UNITS (1 MILLILITER), BIW
     Route: 058
     Dates: start: 20200311

REACTIONS (1)
  - Death [Fatal]

NARRATIVE: CASE EVENT DATE: 20210508
